FAERS Safety Report 10764847 (Version 1)
Quarter: 2015Q1

REPORT INFORMATION
  Report Type: Spontaneous
  Country: US (occurrence: None)
  Receive Date: 20150204
  Receipt Date: 20150204
  Transmission Date: 20150721
  Serious: Yes (Other)
  Sender: FDA-Public Use
  Company Number: None

PATIENT
  Age: 56 Year
  Sex: Female

DRUGS (1)
  1. RILUZOLE 50MG [Suspect]
     Active Substance: RILUZOLE
     Indication: DEMENTIA
     Route: 048
     Dates: start: 20150103, end: 20150201

REACTIONS (1)
  - Vertigo [None]

NARRATIVE: CASE EVENT DATE: 20150201
